FAERS Safety Report 9115933 (Version 1)
Quarter: 2013Q1

REPORT INFORMATION
  Report Type: Spontaneous
  Country: US (occurrence: US)
  Receive Date: 20130225
  Receipt Date: 20130225
  Transmission Date: 20140127
  Serious: Yes (Other)
  Sender: FDA-Public Use
  Company Number: US-PFIZER INC-2013068234

PATIENT
  Age: 50 Year
  Sex: Female

DRUGS (4)
  1. GEODON [Suspect]
     Dosage: UNK
  2. NEURONTIN [Suspect]
     Dosage: UNK
  3. PREMPRO [Suspect]
     Dosage: UNK
     Route: 065
  4. PROTONIX [Suspect]
     Dosage: UNK
     Route: 065

REACTIONS (1)
  - Upper limb fracture [Unknown]
